FAERS Safety Report 10606658 (Version 1)
Quarter: 2014Q4

REPORT INFORMATION
  Report Type: Spontaneous
  Country: US (occurrence: None)
  Receive Date: 20141124
  Receipt Date: 20141124
  Transmission Date: 20150529
  Serious: Yes (Hospitalization)
  Sender: FDA-Public Use
  Company Number: None

PATIENT
  Age: 91 Year
  Sex: Female
  Weight: 54.6 kg

DRUGS (14)
  1. TOPROL XL [Concomitant]
     Active Substance: METOPROLOL SUCCINATE
  2. LISINOPRIL. [Concomitant]
     Active Substance: LISINOPRIL
  3. NEPTAZANE [Concomitant]
     Active Substance: METHAZOLAMIDE
  4. ZOCOR [Concomitant]
     Active Substance: SIMVASTATIN
  5. EFFEXOR XR [Concomitant]
     Active Substance: VENLAFAXINE HYDROCHLORIDE
  6. PRINIVIL [Concomitant]
     Active Substance: LISINOPRIL
  7. ECOTRIN [Concomitant]
     Active Substance: ASPIRIN
  8. AMBIEN [Concomitant]
     Active Substance: ZOLPIDEM TARTRATE
  9. ASA [Concomitant]
     Active Substance: ASPIRIN
  10. BACTRIM [Concomitant]
     Active Substance: SULFAMETHOXAZOLE\TRIMETHOPRIM
  11. GLIPIZIDE. [Suspect]
     Active Substance: GLIPIZIDE
     Indication: DIABETES MELLITUS
     Dosage: 10 MG BID 30 MIN AC MEALS PO
     Route: 048
  12. LANOXIN [Concomitant]
     Active Substance: DIGOXIN
  13. PRILOSEC [Concomitant]
     Active Substance: OMEPRAZOLE MAGNESIUM
  14. LEVAQUIN [Concomitant]
     Active Substance: LEVOFLOXACIN

REACTIONS (3)
  - Hypoglycaemia [None]
  - Loss of consciousness [None]
  - Agitation [None]

NARRATIVE: CASE EVENT DATE: 20140706
